FAERS Safety Report 16095205 (Version 1)
Quarter: 2019Q2

REPORT INFORMATION
  Report Type: Spontaneous
  Country: US (occurrence: US)
  Receive Date: 20190320
  Receipt Date: 20190320
  Transmission Date: 20190711
  Serious: Yes (Hospitalization)
  Sender: FDA-Public Use
  Company Number: None

PATIENT
  Age: 11 Year
  Sex: Male

DRUGS (3)
  1. TOBRAMYCIN. [Suspect]
     Active Substance: TOBRAMYCIN
     Indication: ATELECTASIS
     Route: 055
     Dates: start: 20180726
  2. NO MED LIST AVAILABLE [Concomitant]
  3. PULMOZYME [Suspect]
     Active Substance: DORNASE ALFA
     Indication: ATELECTASIS
     Route: 055
     Dates: start: 20180626

REACTIONS (1)
  - Malaise [None]

NARRATIVE: CASE EVENT DATE: 20190311
